FAERS Safety Report 9107396 (Version 1)
Quarter: 2013Q1

REPORT INFORMATION
  Report Type: Spontaneous
  Country: US (occurrence: US)
  Receive Date: 20130221
  Receipt Date: 20130221
  Transmission Date: 20140127
  Serious: Yes (Hospitalization, Other)
  Sender: FDA-Public Use
  Company Number: US-ALEXION PHARMACEUTICALS INC.-A201300238

PATIENT
  Age: 48 Year
  Sex: Female

DRUGS (1)
  1. SOLIRIS 300MG [Suspect]
     Indication: PAROXYSMAL NOCTURNAL HAEMOGLOBINURIA
     Dosage: UNK
     Route: 042

REACTIONS (7)
  - Rectal haemorrhage [Unknown]
  - Colitis ischaemic [Unknown]
  - Haemoglobin decreased [Unknown]
  - Gastroenteritis viral [Unknown]
  - Haemolysis [Unknown]
  - Chromaturia [Unknown]
  - Jaundice [Unknown]
